FAERS Safety Report 5407948-X (Version None)
Quarter: 2007Q3

REPORT INFORMATION
  Report Type: 
  Country: None (occurrence: None)
  Receive Date: 20070723
  Receipt Date: 20070710
  Transmission Date: 20080115
  Serious: Yes (Hospitalization)
  Sender: FDA-Public Use
  Company Number: THYM-11490

PATIENT
  Age: 58 Year
  Sex: Male
  Weight: 96 kg

DRUGS (6)
  1. THYMOGLOBULIN [Suspect]
     Indication: DISEASE RECURRENCE
     Dosage: 3 MG/KG QD IV
     Route: 042
     Dates: start: 20070706, end: 20070706
  2. THYMOGLOBULIN [Suspect]
     Indication: MULTIPLE MYELOMA
     Dosage: 3 MG/KG QD IV
     Route: 042
     Dates: start: 20070706, end: 20070706
  3. THYMOGLOBULIN [Suspect]
     Indication: DISEASE RECURRENCE
     Dosage: 3 MG/KG QD IV
     Route: 042
     Dates: start: 20070708, end: 20070709
  4. THYMOGLOBULIN [Suspect]
     Indication: MULTIPLE MYELOMA
     Dosage: 3 MG/KG QD IV
     Route: 042
     Dates: start: 20070708, end: 20070709
  5. THYMOGLOBULIN [Suspect]
     Indication: DISEASE RECURRENCE
     Dosage: 3 MG/KG QD IV
     Route: 042
     Dates: start: 20070712, end: 20070712
  6. THYMOGLOBULIN [Suspect]
     Indication: MULTIPLE MYELOMA
     Dosage: 3 MG/KG QD IV
     Route: 042
     Dates: start: 20070712, end: 20070712

REACTIONS (8)
  - ATELECTASIS [None]
  - CHILLS [None]
  - DYSPNOEA [None]
  - INFECTION [None]
  - INFUSION RELATED REACTION [None]
  - PLEURAL EFFUSION [None]
  - PYREXIA [None]
  - RASH [None]
